FAERS Safety Report 14028812 (Version 5)
Quarter: 2020Q2

REPORT INFORMATION
  Report Type: Spontaneous
  Country: US (occurrence: US)
  Receive Date: 20170930
  Receipt Date: 20200603
  Transmission Date: 20200713
  Serious: No
  Sender: FDA-Public Use
  Company Number: US-SA-2017SA105082

PATIENT

DRUGS (2)
  1. AUBAGIO [Suspect]
     Active Substance: TERIFLUNOMIDE
     Indication: MULTIPLE SCLEROSIS
     Dosage: 7 MG (1 TABLET),QD
     Route: 048
     Dates: start: 20161025
  2. AUBAGIO [Suspect]
     Active Substance: TERIFLUNOMIDE
     Dosage: 7 MG (1 TABLET),QD
     Route: 048

REACTIONS (6)
  - White blood cell count decreased [Unknown]
  - Product dose omission [Unknown]
  - Alopecia [Unknown]
  - Malaise [Not Recovered/Not Resolved]
  - Migraine [Not Recovered/Not Resolved]
  - Vitreous floaters [Not Recovered/Not Resolved]
